FAERS Safety Report 8379618-X (Version None)
Quarter: 2012Q2

REPORT INFORMATION
  Report Type: 
  Country: None (occurrence: None)
  Receive Date: 20120523
  Receipt Date: 20120515
  Transmission Date: 20120825
  Serious: Yes (Hospitalization)
  Sender: FDA-Public Use
  Company Number: PHHY2012BR042884

PATIENT
  Sex: Male
  Weight: 84 kg

DRUGS (9)
  1. INSULIN [Concomitant]
     Indication: DIABETES MELLITUS
     Dosage: 20 UL,
  2. JANUVIA [Concomitant]
     Indication: DIABETES MELLITUS
     Dosage: 50 MG, (1 TABLET EARLY)
  3. ROSUVASTATIN CALCIUM [Concomitant]
     Indication: DYSLIPIDAEMIA
     Dosage: 10 MG, (1 TABLET DAILY)
  4. DIOVAN [Suspect]
     Dosage: 80 MG (1 TABLET AT MORNING)
  5. ASPIRIN [Concomitant]
     Indication: CORONARY ARTERY INSUFFICIENCY
     Dosage: 1 DF OF 100 MG,, DAILY
  6. METFORMIN HCL [Concomitant]
     Indication: DIABETES MELLITUS
     Dosage: 850 MG,  (3 TIMES DAILY)
  7. DIAMICRON [Concomitant]
     Indication: DIABETES MELLITUS
     Dosage: 30 MG, (1 TABLET EARLY)
  8. DIOVAN [Suspect]
     Indication: CARDIAC DISORDER
     Dosage: 160 MG
     Route: 048
  9. METOPROLOL SUCCINATE [Concomitant]
     Dosage: 50 MG, (1 TABLET EARLY)

REACTIONS (9)
  - CARDIAC FAILURE [None]
  - DIZZINESS [None]
  - ASTHENIA [None]
  - DYSSTASIA [None]
  - HYPOACUSIS [None]
  - BLOOD PRESSURE DECREASED [None]
  - MALAISE [None]
  - JUDGEMENT IMPAIRED [None]
  - CONDITION AGGRAVATED [None]
